FAERS Safety Report 18110255 (Version 1)
Quarter: 2020Q3

REPORT INFORMATION
  Report Type: Spontaneous
  Country: JP (occurrence: JP)
  Receive Date: 20200804
  Receipt Date: 20200804
  Transmission Date: 20201103
  Serious: Yes (Death, Hospitalization)
  Sender: FDA-Public Use
  Company Number: JP-ABBVIE-20K-087-3510455-00

PATIENT
  Age: 87 Year
  Sex: Female

DRUGS (1)
  1. IMBRUVICA [Suspect]
     Active Substance: IBRUTINIB
     Indication: CHRONIC LYMPHOCYTIC LEUKAEMIA
     Route: 048
     Dates: start: 20190305

REACTIONS (4)
  - Bone tuberculosis [Unknown]
  - Stress cardiomyopathy [Unknown]
  - Richter^s syndrome [Unknown]
  - Disseminated tuberculosis [Fatal]

NARRATIVE: CASE EVENT DATE: 202004
